FAERS Safety Report 8065641-1 (Version None)
Quarter: 2012Q1

REPORT INFORMATION
  Report Type: 
  Country: None (occurrence: None)
  Receive Date: 20120124
  Receipt Date: 20120116
  Transmission Date: 20120608
  Serious: Yes (Hospitalization)
  Sender: FDA-Public Use
  Company Number: US-BAYER-2011-075845

PATIENT
  Age: 33 Year
  Sex: Female
  Weight: 65.76 kg

DRUGS (1)
  1. YAZ [Suspect]

REACTIONS (5)
  - GALLBLADDER INJURY [None]
  - CHOLECYSTECTOMY [None]
  - INJURY [None]
  - PAIN [None]
  - MENTAL DISORDER [None]
